FAERS Safety Report 15926707 (Version 2)
Quarter: 2019Q2

REPORT INFORMATION
  Report Type: Spontaneous
  Country: US (occurrence: US)
  Receive Date: 20190206
  Receipt Date: 20190503
  Transmission Date: 20190711
  Serious: No
  Sender: FDA-Public Use
  Company Number: US-MERZ NORTH AMERICA, INC.-19MRZ-00053

PATIENT
  Sex: Female

DRUGS (2)
  1. UNSPECIFIED WEIGHT LOSS SUPPLEMENT [Concomitant]
     Indication: WEIGHT DECREASED
  2. ASCLERA [Suspect]
     Active Substance: POLIDOCANOL
     Indication: PRODUCT USED FOR UNKNOWN INDICATION
     Dosage: FIRST TREATMENT (4 ML OF 1%) AND (4 ML OF 0.5%)

REACTIONS (1)
  - Influenza like illness [Recovered/Resolved]
